FAERS Safety Report 8477554-1 (Version None)
Quarter: 2012Q2

REPORT INFORMATION
  Report Type: 
  Country: None (occurrence: None)
  Receive Date: 20120629
  Receipt Date: 20120621
  Transmission Date: 20120825
  Serious: Yes (Hospitalization)
  Sender: FDA-Public Use
  Company Number: US-UCBSA-060324

PATIENT
  Age: 53 Year
  Sex: Female
  Weight: 95.5 kg

DRUGS (17)
  1. METHOTREXATE [Concomitant]
     Indication: RHEUMATOID ARTHRITIS
     Dosage: CURRENTLY 2.5MG, 6 TABLETS WEEKLY AS NECESSARY
     Route: 048
     Dates: start: 19980101
  2. FOSAMAX [Concomitant]
     Indication: OSTEOPOROSIS
     Dates: start: 20110601
  3. ZOLPIDEM [Concomitant]
     Indication: INSOMNIA
     Dates: start: 20110101
  4. ZANTAC [Concomitant]
     Dates: start: 20111201
  5. CALCIUM [Concomitant]
     Indication: OSTEOPOROSIS
     Dates: start: 19980101
  6. ROPINIROLE [Concomitant]
     Indication: RESTLESS LEGS SYNDROME
     Dates: start: 20110601
  7. FOLIC ACID [Concomitant]
     Indication: VITAMIN SUPPLEMENTATION
     Dates: start: 19980101
  8. VITAMIN D [Concomitant]
     Indication: OSTEOPOROSIS
     Dosage: 2000
     Dates: start: 19980101
  9. ATENOLOL [Concomitant]
     Indication: HEART RATE INCREASED
     Dates: start: 20020101
  10. SIMVASTATIN [Concomitant]
     Indication: DYSLIPIDAEMIA
     Dates: start: 20030101
  11. PRAMIPEXOLE DIHYCHLORIDE [Concomitant]
     Indication: RESTLESS LEGS SYNDROME
     Dates: start: 20110916
  12. NAPROSYN [Concomitant]
     Indication: RHEUMATOID ARTHRITIS
     Dates: start: 20110301
  13. PROAIR HFA [Concomitant]
     Indication: ASTHMA
     Dosage: 1 PUFF
     Route: 055
     Dates: start: 20060101
  14. ADDERALL 5 [Concomitant]
  15. CIMZIA [Suspect]
     Indication: RHEUMATOID ARTHRITIS
  16. VENTOLIN [Concomitant]
     Indication: ASTHMA
     Dosage: 1 PUFF
     Route: 055
     Dates: start: 20110701
  17. LEVOTHYROXINE [Concomitant]
     Indication: HYPOTHYROIDISM
     Dates: start: 20110916

REACTIONS (1)
  - CHEST PAIN [None]
